FAERS Safety Report 8801394 (Version 1)
Quarter: 2012Q4

REPORT INFORMATION
  Report Type: 
  Country: FI (occurrence: FI)
  Receive Date: 20120921
  Receipt Date: 20120921
  Transmission Date: 20130627
  Serious: Yes (Disabling)
  Sender: FDA-Public Use
  Company Number: FI-RANBAXY-2012RR-60320

PATIENT
  Sex: Female

DRUGS (3)
  1. ATORVASTATIN [Suspect]
     Indication: HYPERCHOLESTEROLAEMIA
     Dosage: 20 mg, UNK
     Route: 048
     Dates: start: 20100922, end: 20120601
  2. BISOPROLOL RATIOPHARM [Concomitant]
     Indication: HYPERTENSION
     Dosage: 2.5 mg
     Route: 048
     Dates: start: 20120222
  3. DUOTRAV [Concomitant]
     Indication: GLAUCOMA
     Dosage: 1 Gtt, 40ug/5mg
     Route: 047
     Dates: start: 20110115

REACTIONS (10)
  - Musculoskeletal stiffness [Recovered/Resolved]
  - Sluggishness [Recovered/Resolved]
  - Fall [Recovered/Resolved]
  - Balance disorder [Recovered/Resolved]
  - Cognitive disorder [Recovered/Resolved]
  - Activities of daily living impaired [Recovered/Resolved]
  - Memory impairment [Recovered/Resolved]
  - Nausea [Recovered/Resolved]
  - Dizziness [Recovered/Resolved]
  - Cerebral atrophy [None]
